FAERS Safety Report 6210075-5 (Version None)
Quarter: 2009Q2

REPORT INFORMATION
  Report Type: 
  Country: None (occurrence: None)
  Receive Date: 20090601
  Receipt Date: 20090525
  Transmission Date: 20091009
  Serious: Yes (Death)
  Sender: FDA-Public Use
  Company Number: EG-ROCHE-634414

PATIENT
  Sex: Male
  Weight: 85 kg

DRUGS (2)
  1. PEG-INTERFERON ALFA 2A (RO 25-8310) [Suspect]
     Route: 058
     Dates: start: 20090325, end: 20090429
  2. RIBAVIRIN [Suspect]
     Route: 048
     Dates: start: 20090325, end: 20090429

REACTIONS (1)
  - HEPATIC LESION [None]
